FAERS Safety Report 5460111-9 (Version None)
Quarter: 2007Q3

REPORT INFORMATION
  Report Type: 
  Country: None (occurrence: None)
  Receive Date: 20070919
  Receipt Date: 20070601
  Transmission Date: 20080115
  Serious: Yes (Hospitalization)
  Sender: FDA-Public Use
  Company Number: US-ASTRAZENECA-2007UW12357

PATIENT
  Age: 44 Year
  Sex: Male
  Weight: 66.7 kg

DRUGS (11)
  1. SEROQUEL [Suspect]
     Route: 048
  2. CLONAZEPAM [Concomitant]
  3. CARISOPRODOL [Concomitant]
  4. CLOMIPRAMINE HCL [Concomitant]
  5. INTERFERON [Concomitant]
  6. PEGASYS [Concomitant]
  7. KEPPRA [Concomitant]
  8. LITHIUM [Concomitant]
  9. EFFEXOR [Concomitant]
  10. MIRTAZAPINE [Concomitant]
  11. FUROSEMIDE [Concomitant]

REACTIONS (2)
  - CARDIAC ENZYMES INCREASED [None]
  - CHEST PAIN [None]
